FAERS Safety Report 5839351-2 (Version None)
Quarter: 2008Q3

REPORT INFORMATION
  Report Type: 
  Country: None (occurrence: None)
  Receive Date: 20080806
  Receipt Date: 20080730
  Transmission Date: 20090109
  Serious: Yes (Death, Life-Threatening, Hospitalization, Disabling)
  Sender: FDA-Public Use
  Company Number: 000626

PATIENT
  Age: 52 Year
  Sex: Female

DRUGS (2)
  1. BUSULFEX [Suspect]
     Indication: STEM CELL TRANSPLANT
     Dosage: 26.8 ML, INTRAVENOUS
     Route: 042
     Dates: start: 20070611, end: 20070612
  2. FLUDARABINE PHOSPHATE [Concomitant]

REACTIONS (17)
  - ANOREXIA [None]
  - BONE MARROW TRANSPLANT REJECTION [None]
  - DIARRHOEA [None]
  - ENGRAFTMENT SYNDROME [None]
  - ENTEROCOCCAL SEPSIS [None]
  - HALLUCINATION [None]
  - HYPERURICAEMIA [None]
  - MULTI-ORGAN FAILURE [None]
  - NAUSEA [None]
  - PNEUMOMEDIASTINUM [None]
  - PNEUMONIA [None]
  - RESPIRATORY FAILURE [None]
  - SEPSIS [None]
  - SOMNOLENCE [None]
  - STAPHYLOCOCCAL SEPSIS [None]
  - STOMATITIS [None]
  - VENOOCCLUSIVE LIVER DISEASE [None]
